FAERS Safety Report 7699528-0 (Version None)
Quarter: 2011Q3

REPORT INFORMATION
  Report Type: 
  Country: None (occurrence: None)
  Receive Date: 20110820
  Receipt Date: 20110810
  Transmission Date: 20111222
  Serious: Yes (Death, Life-Threatening, Hospitalization)
  Sender: FDA-Public Use
  Company Number: CA-AMGEN-CANSP2011040549

PATIENT
  Age: 68 Year
  Sex: Male
  Weight: 58.5 kg

DRUGS (9)
  1. PHENOBARBITAL TAB [Concomitant]
     Dosage: UNK
  2. ZOPICLONE [Concomitant]
     Dosage: UNK
  3. ENBREL [Suspect]
     Indication: RHEUMATOID ARTHRITIS
     Dosage: 50 MG, QWK
     Route: 058
     Dates: start: 20040521, end: 20110601
  4. HYZAAR [Concomitant]
     Dosage: UNK
  5. ACEBUTOLOL [Concomitant]
     Dosage: UNK
  6. RANITIDINE [Concomitant]
     Dosage: UNK
  7. TYLENOL (CAPLET) [Concomitant]
     Dosage: UNK
  8. PREDNISONE [Concomitant]
     Dosage: 10 MG, UNK
  9. SPIRIVA [Concomitant]
     Dosage: UNK

REACTIONS (8)
  - WOUND [None]
  - DIZZINESS [None]
  - ASPIRATION [None]
  - OSTEOMYELITIS BACTERIAL [None]
  - ASTHENIA [None]
  - FALL [None]
  - LOSS OF CONSCIOUSNESS [None]
  - CARDIOPULMONARY FAILURE [None]
